FAERS Safety Report 7484847-3 (Version None)
Quarter: 2011Q2

REPORT INFORMATION
  Report Type: 
  Country: None (occurrence: None)
  Receive Date: 20110517
  Receipt Date: 20110505
  Transmission Date: 20111010
  Serious: Yes (Other)
  Sender: FDA-Public Use
  Company Number: US-ROCHE-775742

PATIENT
  Sex: Male
  Weight: 16.2 kg

DRUGS (1)
  1. CAPECITABINE [Suspect]
     Indication: BRAIN STEM GLIOMA
     Dosage: LAST DOSE PRIOR TO SAE: 01 MAY 2011, DOSAGE FORM:RDT
     Route: 048
     Dates: start: 20110301

REACTIONS (1)
  - CENTRAL NERVOUS SYSTEM NECROSIS [None]
